FAERS Safety Report 15456992 (Version 3)
Quarter: 2018Q4

REPORT INFORMATION
  Report Type: Report from Study
  Country: US (occurrence: US)
  Receive Date: 20181002
  Receipt Date: 20181223
  Transmission Date: 20190204
  Serious: Yes (Hospitalization)
  Sender: FDA-Public Use
  Company Number: US-ACTELION-A-US2015-126047

PATIENT
  Age: 8 Year
  Sex: Female
  Weight: 38.95 kg

DRUGS (6)
  1. TRACLEER [Suspect]
     Active Substance: BOSENTAN
     Dosage: 62.5 MG, BID
     Route: 048
  2. ADCIRCA [Concomitant]
     Active Substance: TADALAFIL
     Dosage: 40 MG, QD
     Dates: start: 201102
  3. TRACLEER [Suspect]
     Active Substance: BOSENTAN
     Indication: PULMONARY ARTERIAL HYPERTENSION
     Dosage: 62.5 MG, BID
     Route: 048
     Dates: start: 201308
  4. COUMADIN [Concomitant]
     Active Substance: WARFARIN SODIUM
  5. TREPROSTINIL DIOLAMIN [Suspect]
     Active Substance: TREPROSTINIL DIOLAMINE
     Indication: PULMONARY ARTERIAL HYPERTENSION
     Dosage: 8.5 MG, UNK
     Route: 048
     Dates: start: 201508, end: 201808
  6. REMODULIN [Concomitant]
     Active Substance: TREPROSTINIL
     Indication: PULMONARY ARTERIAL HYPERTENSION
     Dosage: UNK
     Route: 058
     Dates: start: 201808

REACTIONS (20)
  - Catheter site infection [Unknown]
  - Vomiting [Unknown]
  - Nausea [Unknown]
  - Flushing [Unknown]
  - Catheter site erythema [Recovered/Resolved]
  - Pulmonary arterial hypertension [Recovered/Resolved]
  - Hot flush [Unknown]
  - Therapy change [Unknown]
  - Headache [Recovering/Resolving]
  - Dyspnoea [Unknown]
  - Chest pain [Unknown]
  - Catheter site inflammation [Recovered/Resolved]
  - Catheter site pain [Unknown]
  - Nasopharyngitis [Unknown]
  - Pulmonary hypertension [Unknown]
  - Infusion site abscess [Unknown]
  - Condition aggravated [Recovered/Resolved]
  - Abdominal pain upper [Recovering/Resolving]
  - Adverse event [Unknown]
  - Skin discolouration [Unknown]

NARRATIVE: CASE EVENT DATE: 20180808
